FAERS Safety Report 8446235-2 (Version None)
Quarter: 2012Q2

REPORT INFORMATION
  Report Type: 
  Country: None (occurrence: None)
  Receive Date: 20120618
  Receipt Date: 20120614
  Transmission Date: 20120825
  Serious: Yes (Death)
  Sender: FDA-Public Use
  Company Number: US-CELGENEUS-163-21880-12062240

PATIENT
  Sex: Female

DRUGS (11)
  1. TOPROL-XL [Concomitant]
     Dosage: 25 MILLIGRAM
     Route: 048
  2. NITROSTAT [Concomitant]
     Dosage: .3 MILLIGRAM
     Route: 058
  3. REVLIMID [Suspect]
     Indication: MULTIPLE MYELOMA
     Dosage: 15 MILLIGRAM
     Route: 048
     Dates: start: 20120425
  4. VELCADE [Concomitant]
     Dosage: 3.5 MILLIGRAM
     Route: 065
  5. DILTIAZEM HYDROCHOLORIDE [Concomitant]
     Dosage: 60 MILLIGRAM
     Route: 048
  6. ASPIRIN [Concomitant]
     Dosage: 325 MILLIGRAM
     Route: 048
  7. KLOR-CON [Concomitant]
     Dosage: 10 MILLIEQUIVALENTS
     Route: 048
  8. LIPITOR [Concomitant]
     Dosage: 20 MILLIGRAM
     Route: 048
  9. OMEPRAZOLE [Concomitant]
     Dosage: 20 MILLIGRAM
     Route: 048
  10. CO Q10 [Concomitant]
     Dosage: 100 MILLIGRAM
     Route: 048
  11. FUROSEMIDE [Concomitant]
     Dosage: 20 MILLIGRAM
     Route: 048

REACTIONS (1)
  - DEATH [None]
